FAERS Safety Report 20750074 (Version 1)
Quarter: 2022Q2

REPORT INFORMATION
  Report Type: Spontaneous
  Country: US (occurrence: US)
  Receive Date: 20220426
  Receipt Date: 20220426
  Transmission Date: 20220721
  Serious: Yes (Hospitalization, Other)
  Sender: FDA-Public Use
  Company Number: US-CASPERPHARMA-US-2022RISSPO00423

PATIENT
  Age: 30 Year
  Sex: Female

DRUGS (6)
  1. MECLIZINE HYDROCHLORIDE [Suspect]
     Active Substance: MECLIZINE HYDROCHLORIDE
     Indication: Migraine
     Route: 065
  2. UBRELVY [Suspect]
     Active Substance: UBROGEPANT
     Indication: Migraine
     Route: 065
  3. BUTALBITAL [Suspect]
     Active Substance: BUTALBITAL
     Indication: Migraine
     Route: 065
  4. RIZATRIPTAN [Suspect]
     Active Substance: RIZATRIPTAN
     Indication: Migraine
     Route: 065
  5. ZOLMITRIPTAN [Suspect]
     Active Substance: ZOLMITRIPTAN
     Indication: Migraine
     Route: 065
  6. DICHLORPHENAMIDE [Concomitant]
     Active Substance: DICHLORPHENAMIDE
     Indication: Product used for unknown indication
     Route: 065

REACTIONS (2)
  - Paralysis [None]
  - Product use in unapproved indication [Unknown]
